FAERS Safety Report 23547157 (Version 1)
Quarter: 2024Q1

REPORT INFORMATION
  Report Type: Spontaneous
  Country: US (occurrence: US)
  Receive Date: 20240221
  Receipt Date: 20240221
  Transmission Date: 20240410
  Serious: No
  Sender: FDA-Public Use
  Company Number: US-Jiangsu Hengrui Medicine Co., Ltd.-2153475

PATIENT
  Age: 16 Year
  Sex: Female
  Weight: 59 kg

DRUGS (1)
  1. GADOBUTROL [Suspect]
     Active Substance: GADOBUTROL
     Dates: start: 20231218, end: 20231218

REACTIONS (4)
  - Nausea [Recovered/Resolved]
  - Feeling hot [Recovering/Resolving]
  - Pallor [Recovering/Resolving]
  - Vomiting [Recovering/Resolving]

NARRATIVE: CASE EVENT DATE: 20231218
